FAERS Safety Report 4643449-4 (Version None)
Quarter: 2005Q2

REPORT INFORMATION
  Report Type: 
  Country: None (occurrence: None)
  Receive Date: 20050324
  Receipt Date: 20050131
  Transmission Date: 20051028
  Serious: Yes (Death, Life-Threatening, Hospitalization)
  Sender: FDA-Public Use
  Company Number: 207984

PATIENT
  Age: 64 Year
  Sex: Male
  Weight: 44.4 kg

DRUGS (3)
  1. AVASTIN [Suspect]
     Indication: COLON CANCER
     Dosage: 200 MG,1/WEEK,INTRAVENOUS
     Route: 042
     Dates: start: 20040608, end: 20040713
  2. FLUOROURACIL [Concomitant]
  3. LEUCOVORIN CALCIUM [Concomitant]

REACTIONS (1)
  - GASTROINTESTINAL PERFORATION [None]
